FAERS Safety Report 4461641-9 (Version None)
Quarter: 2004Q3

REPORT INFORMATION
  Report Type: 
  Country: None (occurrence: None)
  Receive Date: 20040923
  Receipt Date: 20040910
  Transmission Date: 20050211
  Serious: Yes (Other)
  Sender: FDA-Public Use
  Company Number: HQWYE988813SEP04

PATIENT
  Sex: Female

DRUGS (1)
  1. EFFEXOR [Suspect]
     Dosage: 150 MG 1X PER 1 DAY TRANSPLACENTAL
     Route: 064

REACTIONS (5)
  - DRUG EXPOSURE DURING PREGNANCY [None]
  - HYPERTONIA NEONATAL [None]
  - HYPOTONIC-HYPORESPONSIVE EPISODE [None]
  - NEONATAL DISORDER [None]
  - NERVOUS SYSTEM DISORDER [None]
